FAERS Safety Report 24461817 (Version 1)
Quarter: 2024Q4

REPORT INFORMATION
  Report Type: Report from Study
  Country: ZA (occurrence: ZA)
  Receive Date: 20241018
  Receipt Date: 20241018
  Transmission Date: 20250115
  Serious: No
  Sender: ROCHE
  Company Number: ZA-ROCHE-3543663

PATIENT
  Age: 83 Year
  Sex: Female
  Weight: 42.0 kg

DRUGS (2)
  1. RITUXIMAB [Suspect]
     Active Substance: RITUXIMAB
     Indication: Rheumatoid arthritis
     Dosage: ON 13/MAY/2024, RECEIVED INFUSION?1000 MG ON DAY 0 AND DAY 14, THEN EVERY SIX MONTHS
     Route: 041
     Dates: start: 20221012
  2. RITUXIMAB [Suspect]
     Active Substance: RITUXIMAB
     Indication: Granulomatosis with polyangiitis

REACTIONS (1)
  - Osteoarthritis [Unknown]
